FAERS Safety Report 5916210-8 (Version None)
Quarter: 2008Q4

REPORT INFORMATION
  Report Type: 
  Country: None (occurrence: None)
  Receive Date: 20081013
  Receipt Date: 20080930
  Transmission Date: 20090506
  Serious: Yes (Death, Hospitalization)
  Sender: FDA-Public Use
  Company Number: US-ROCHE-582827

PATIENT
  Sex: Female

DRUGS (33)
  1. MYCOPHENOLATE MOFETIL [Suspect]
     Indication: DRUG USE FOR UNKNOWN INDICATION
     Route: 048
     Dates: start: 20060511
  2. NEXIUM [Concomitant]
     Dosage: 40 MG PER G-TUBE EVERY DAY
  3. CARVEDILOL [Concomitant]
     Route: 048
  4. NEXIUM [Concomitant]
  5. PLAVIX [Concomitant]
     Route: 048
  6. SYNTHROID [Concomitant]
     Route: 048
  7. 1 CONCOMITANT UNSPECIFIED DRUG [Concomitant]
     Dosage: MAGIC BUTT CREAM TO AFFECTED AREAS TWICE DAILY
  8. MAGNESIUM OXIDE [Concomitant]
     Route: 048
  9. NEPHROCAPS [Concomitant]
     Dosage: ONE CAPSULE BY MOUTH EVERY DAY
     Route: 048
  10. TACROLIMUS [Concomitant]
     Route: 048
  11. VITAMINE D [Concomitant]
     Dosage: 50,000 UNITS BY MOUTH ONCE A WEEK ON TUESDAYS
     Route: 048
  12. VANCOMYCIN HYDROCHLORIDE [Concomitant]
     Dosage: 1000 MG IV IN DIALYSIS ON MON, WED AND FRIDAY
     Route: 042
  13. GENTAMICIN [Concomitant]
     Dosage: 100 MG IV IN DIALYSIS MON, WED AND FRIDAY
     Route: 042
  14. GENTAMICIN [Concomitant]
     Dosage: 30 MG EVERY DIALYSIS
     Route: 042
  15. LAC-HYDRIN [Concomitant]
     Dosage: TWICE DAILY TO LOWER RIGHT EXTREMITY
  16. ZINC OXIDE CREAM [Concomitant]
     Dosage: TWICE DAILY TO PERI AREA AND BACK
  17. ARANESP [Concomitant]
     Dosage: 200 MCG EVERY FRIDAY IN DIALYSIS
     Route: 042
  18. MORPHINE SULFATE INJ [Concomitant]
     Dosage: 1 MG IV PUSH DAILY PRIOR TO DRESSING CHANGE
     Route: 042
  19. ZOCOR [Concomitant]
     Dosage: EVERY NIGHT
     Route: 048
  20. DAKIN [Concomitant]
     Dosage: 1/4 STRENGTH SOLUTION TO LEFT ABOVE KNEE AMPUTATION WOUND DAILY
  21. OXYCODONE HCL [Concomitant]
     Dosage: EVERY 8 HOURS
     Route: 048
  22. SEROQUEL [Concomitant]
     Dosage: EVERY EIGHT HOURS
     Route: 048
  23. CELEXA [Concomitant]
     Route: 048
  24. ZINC SULFATE [Concomitant]
     Route: 048
  25. HEPARIN [Concomitant]
     Dosage: 5000 UNITS EVERY 12 HOURS
     Route: 058
  26. ASPIRIN [Concomitant]
     Route: 048
  27. NOVOLOG [Concomitant]
     Dosage: BY SLIDING SCALE
  28. REGULAR INSULIN [Concomitant]
     Dosage: 20 UNITS SUBCUTANEOUS EVERY 6 HOURS
     Route: 058
  29. LANTUS [Concomitant]
     Dosage: 50 UNITS EVERY NIGHT
     Route: 058
  30. AMBIEN [Concomitant]
     Dosage: EVERY NIGHT AS NEEDED
     Route: 048
  31. PERCOCET [Concomitant]
     Dosage: 5/325 MG ONE TABLET EVERY FOUR HOURS AS NEEDED
     Route: 048
  32. ATIVAN [Concomitant]
     Dosage: THREE TIMES A DAY AS NEEDED
     Route: 048
  33. SEROQUEL [Concomitant]
     Dosage: EVERY EIGHT HOURS AS NEEDED
     Route: 048

REACTIONS (15)
  - ACUTE MYOCARDIAL INFARCTION [None]
  - ANAEMIA [None]
  - BACTERAEMIA [None]
  - CARDIOPULMONARY FAILURE [None]
  - CEREBROVASCULAR ACCIDENT [None]
  - CLOSTRIDIUM DIFFICILE COLITIS [None]
  - DIABETES MELLITUS INADEQUATE CONTROL [None]
  - GASTROINTESTINAL HAEMORRHAGE [None]
  - MALNUTRITION [None]
  - PERIPHERAL ISCHAEMIA [None]
  - RENAL FAILURE CHRONIC [None]
  - SEPTIC SHOCK [None]
  - SKIN NECROSIS [None]
  - URINARY TRACT INFECTION PSEUDOMONAL [None]
  - WOUND INFECTION [None]
